FAERS Safety Report 7647400-4 (Version None)
Quarter: 2011Q3

REPORT INFORMATION
  Report Type: 
  Country: None (occurrence: None)
  Receive Date: 20110801
  Receipt Date: 20110725
  Transmission Date: 20111222
  Serious: Yes (Hospitalization)
  Sender: FDA-Public Use
  Company Number: BR-MEDIMMUNE-MEDI-0013353

PATIENT
  Sex: Female
  Weight: 2.6 kg

DRUGS (6)
  1. SYNAGIS [Suspect]
  2. RANITIDINE [Concomitant]
     Route: 048
     Dates: start: 20110501
  3. FERROUS SULFATE TAB [Concomitant]
     Route: 048
     Dates: start: 20110627
  4. SYNAGIS [Suspect]
     Indication: BRONCHOPULMONARY DYSPLASIA
     Route: 030
     Dates: start: 20110501, end: 20110101
  5. DOMPERIDONE [Concomitant]
     Route: 048
     Dates: start: 20110501
  6. PROTOVIT [Concomitant]
     Route: 048
     Dates: start: 20110627

REACTIONS (2)
  - APNOEIC ATTACK [None]
  - BRONCHOPULMONARY DYSPLASIA [None]
